FAERS Safety Report 7176303-7 (Version None)
Quarter: 2010Q4

REPORT INFORMATION
  Report Type: 
  Country: None (occurrence: None)
  Receive Date: 20101220
  Receipt Date: 20101210
  Transmission Date: 20110411
  Serious: No
  Sender: FDA-Public Use
  Company Number: US-PFIZER INC-2010169445

PATIENT
  Sex: Female
  Weight: 52.154 kg

DRUGS (2)
  1. PRISTIQ [Suspect]
     Indication: POSTPARTUM DISORDER
     Dosage: 50 MG, 1X/DAY
     Route: 048
     Dates: start: 20090301, end: 20100501
  2. ALPRAZOLAM [Concomitant]
     Dosage: 0.125 MG, UNK

REACTIONS (4)
  - ANAEMIA [None]
  - ASTHENIA [None]
  - BLOOD THYROID STIMULATING HORMONE INCREASED [None]
  - MENORRHAGIA [None]
